FAERS Safety Report 24459644 (Version 1)
Quarter: 2024Q4

REPORT INFORMATION
  Report Type: Report from Study
  Country: JP (occurrence: JP)
  Receive Date: 20241018
  Receipt Date: 20241018
  Transmission Date: 20250115
  Serious: No
  Sender: ROCHE
  Company Number: JP-ROCHE-3540359

PATIENT
  Age: 5 Year
  Sex: Male
  Weight: 24.0 kg

DRUGS (10)
  1. RITUXAN [Suspect]
     Active Substance: RITUXIMAB
     Indication: Nephrotic syndrome
     Dosage: ON 01/MAR/2016, 08/MAR/2016, 15/MAR/2016, HE RECEIVED MOST RECENT DOSE OF RITUXIMAB.
     Route: 041
     Dates: start: 20160223, end: 20160223
  2. RITUXAN [Suspect]
     Active Substance: RITUXIMAB
     Route: 041
     Dates: start: 20170203
  3. CALONAL [Concomitant]
     Active Substance: ACETAMINOPHEN
     Indication: Nephrotic syndrome
     Dosage: NEXT DOSES ON : 01-MAR-2016, 08-MAR-2016, 15-MAR-2016, 03-FEB-2017
     Route: 048
     Dates: start: 20160223, end: 20160223
  4. CYCLOSPORINE [Concomitant]
     Active Substance: CYCLOSPORINE
     Dosage: NEXT DOSE ON: 19/MAY/2016 (50 MG), 17/JUN/2016 (25 MG)
     Route: 048
     Dates: start: 20160518
  5. PREDNISOLONE [Concomitant]
     Active Substance: PREDNISOLONE
     Route: 048
     Dates: start: 20160204, end: 20170329
  6. ACETAMINOPHEN [Concomitant]
     Active Substance: ACETAMINOPHEN
     Route: 048
  7. DEXCHLORPHENIRAMINE MALEATE [Concomitant]
     Active Substance: DEXCHLORPHENIRAMINE MALEATE
     Dosage: NEXT DOSES ON : 01-MAR-2016, 08-MAR-2016, 15-MAR-2016, 03-FEB-2017
     Route: 048
     Dates: start: 20160223
  8. METHYLPREDNISOLONE SODIUM SUCCINATE [Concomitant]
     Active Substance: METHYLPREDNISOLONE SODIUM SUCCINATE
     Dosage: NEXT DOSES ON : 01-MAR-2016, 08-MAR-2016, 15-MAR-2016, 03-FEB-2017
     Route: 042
     Dates: start: 20160223
  9. SULFAMETHOXAZOLE\TRIMETHOPRIM [Concomitant]
     Active Substance: SULFAMETHOXAZOLE\TRIMETHOPRIM
     Dosage: NEXT DOSE ON: 20-NOV-2016
     Route: 048
     Dates: start: 20160224
  10. CELLCEPT [Concomitant]
     Active Substance: MYCOPHENOLATE MOFETIL
     Route: 048
     Dates: start: 20170204

REACTIONS (6)
  - Blood immunoglobulin A decreased [Recovered/Resolved]
  - Blood immunoglobulin G decreased [Recovered/Resolved]
  - Blood immunoglobulin M decreased [Recovered/Resolved]
  - Exanthema subitum [Recovered/Resolved]
  - Influenza [Recovered/Resolved]
  - Neutrophil count decreased [Recovered/Resolved]

NARRATIVE: CASE EVENT DATE: 20160331
